FAERS Safety Report 5833252-1 (Version None)
Quarter: 2008Q3

REPORT INFORMATION
  Report Type: 
  Country: None (occurrence: None)
  Receive Date: 20080801
  Receipt Date: 20080718
  Transmission Date: 20090109
  Serious: Yes (Hospitalization)
  Sender: FDA-Public Use
  Company Number: 15155

PATIENT
  Age: 58 Year
  Sex: Female
  Weight: 72.5755 kg

DRUGS (5)
  1. MORPHINE SULFATE [Suspect]
     Indication: BACK PAIN
     Dosage: 60 MG TID ORALLY
     Route: 048
     Dates: start: 20070101, end: 20080601
  2. LISINOPRIL [Concomitant]
  3. COUMADIN [Concomitant]
  4. OXYBUTYNIN [Concomitant]
  5. OXYCODONE HCL [Concomitant]

REACTIONS (4)
  - DEHYDRATION [None]
  - DEPRESSED LEVEL OF CONSCIOUSNESS [None]
  - PHARMACEUTICAL PRODUCT COMPLAINT [None]
  - RENAL FAILURE [None]
